FAERS Safety Report 13311023 (Version 5)
Quarter: 2022Q4

REPORT INFORMATION
  Report Type: Spontaneous
  Country: US (occurrence: US)
  Receive Date: 20170309
  Receipt Date: 20221027
  Transmission Date: 20230113
  Serious: Yes (Other)
  Sender: FDA-Public Use
  Company Number: US-JNJFOC-20170213648

PATIENT
  Age: 41 Year
  Sex: Male

DRUGS (1)
  1. RISPERDAL [Suspect]
     Active Substance: RISPERIDONE
     Indication: Hallucination, auditory
     Route: 048
     Dates: start: 19990503, end: 19990610

REACTIONS (4)
  - Weight increased [Unknown]
  - Emotional disorder [Unknown]
  - Fatigue [Not Recovered/Not Resolved]
  - Gynaecomastia [Unknown]

NARRATIVE: CASE EVENT DATE: 19990507
